FAERS Safety Report 13814690 (Version 1)
Quarter: 2017Q3

REPORT INFORMATION
  Report Type: Spontaneous
  Country: US (occurrence: US)
  Receive Date: 20170729
  Receipt Date: 20170729
  Transmission Date: 20171127
  Serious: No
  Sender: FDA-Public Use
  Company Number: None

PATIENT
  Sex: Male
  Weight: 87.75 kg

DRUGS (1)
  1. TEMAZEPAM. [Suspect]
     Active Substance: TEMAZEPAM
     Dosage: ?          QUANTITY:90 CAPSULE(S);?
     Route: 048

REACTIONS (1)
  - Product storage error [None]

NARRATIVE: CASE EVENT DATE: 20170721
